FAERS Safety Report 21498791 (Version 1)
Quarter: 2022Q4

REPORT INFORMATION
  Report Type: Report from Study
  Country: EG (occurrence: EG)
  Receive Date: 20221024
  Receipt Date: 20221024
  Transmission Date: 20230112
  Serious: Yes (Other)
  Sender: FDA-Public Use
  Company Number: EG-NOVARTISPH-NVSC2022EG236040

PATIENT
  Sex: Female

DRUGS (10)
  1. GILENYA [Suspect]
     Active Substance: FINGOLIMOD HYDROCHLORIDE
     Indication: Multiple sclerosis
     Dosage: 1 DOSAGE FORM, QD, (STARTED 6 TO 7 YEARS AGO)
     Route: 048
  2. SEROQUEL [Concomitant]
     Active Substance: QUETIAPINE FUMARATE
     Indication: Sleep disorder
     Dosage: UNK
     Route: 065
     Dates: start: 2012
  3. FOLIC ACID [Concomitant]
     Active Substance: FOLIC ACID
     Indication: Supplementation therapy
     Dosage: UNK, QD
     Route: 065
  4. CONTROLOC [Concomitant]
     Active Substance: PANTOPRAZOLE SODIUM
     Indication: Abdominal discomfort
     Dosage: UNK, QD, (STARTED MORE THAN 20 YEARS AGO)
     Route: 065
  5. RIVAROSPIRE [Concomitant]
     Indication: Anticoagulant therapy
     Dosage: UNK, QD, (STARTED MORE THAN 15 YEARS AGO)
     Route: 065
  6. GAPTIN [Concomitant]
     Indication: Sedation
     Dosage: UNK, QD, (STARTED 10 YEARS AGO)
     Route: 065
  7. NEUROTONE [Concomitant]
     Indication: Supplementation therapy
     Dosage: UNK, BID, (STARTED 20 YEARS AGO AND STOPPED 2 YEARS AGO)
     Route: 065
  8. VITAMIN D NOS [Concomitant]
     Active Substance: VITAMIN D NOS
     Indication: Supplementation therapy
     Dosage: UNK, QD, ( (STARTED 20 YEARS AGO AND STOPPED 2 YEARS AGO)
     Route: 065
  9. OSSOFORTIN [Concomitant]
     Indication: Supplementation therapy
     Dosage: UNK, QD, (STARTED 20 YEARS AGO)
     Route: 065
  10. ASPIRIN [Concomitant]
     Active Substance: ASPIRIN
     Indication: Anticoagulant therapy
     Dosage: UNK, QD, (STARTED MORE THAN 15 YEARS AGO)
     Route: 065

REACTIONS (13)
  - Microcytic anaemia [Unknown]
  - Lymphocyte count decreased [Unknown]
  - Urinary tract inflammation [Not Recovered/Not Resolved]
  - Urinary incontinence [Not Recovered/Not Resolved]
  - Tongue discomfort [Not Recovered/Not Resolved]
  - Vaginal infection [Not Recovered/Not Resolved]
  - Vulvovaginal pain [Not Recovered/Not Resolved]
  - Vulvovaginal burning sensation [Not Recovered/Not Resolved]
  - Multiple sclerosis relapse [Recovered/Resolved]
  - Limb discomfort [Recovered/Resolved]
  - Gait disturbance [Recovered/Resolved]
  - Multiple sclerosis relapse [Not Recovered/Not Resolved]
  - Limb discomfort [Not Recovered/Not Resolved]

NARRATIVE: CASE EVENT DATE: 20210101
